FAERS Safety Report 12047116 (Version 1)
Quarter: 2016Q1

REPORT INFORMATION
  Report Type: Report from Study
  Country: FR (occurrence: FR)
  Receive Date: 20160209
  Receipt Date: 20160209
  Transmission Date: 20160526
  Serious: Yes (Life-Threatening, Hospitalization, Other)
  Sender: FDA-Public Use
  Company Number: FR-ROCHE-ITM201309IM004192

PATIENT
  Age: 64 Year
  Sex: Male
  Weight: 85 kg

DRUGS (34)
  1. PIRFENIDONE [Suspect]
     Active Substance: PIRFENIDONE
     Dosage: 1602 MG?6 DF
     Route: 048
     Dates: start: 20131104
  2. CORTANCYL [Concomitant]
     Active Substance: PREDNISONE
     Indication: IDIOPATHIC PULMONARY FIBROSIS
     Route: 065
     Dates: start: 20130925, end: 20141123
  3. N-ACETYLCYSTEINE [Concomitant]
     Active Substance: ACETYLCYSTEINE
     Indication: IDIOPATHIC PULMONARY FIBROSIS
     Route: 065
     Dates: start: 20130929, end: 20131014
  4. AUGMENTIN [Concomitant]
     Active Substance: AMOXICILLIN\CLAVULANATE POTASSIUM
     Indication: BRONCHITIS
     Route: 065
     Dates: start: 20130726, end: 20130802
  5. TRIFLUCAN [Concomitant]
     Active Substance: FLUCONAZOLE
     Indication: CANDIDA INFECTION
     Route: 065
     Dates: start: 20141117, end: 20141122
  6. FORTUM [Concomitant]
     Active Substance: CEFTAZIDIME
  7. PIRFENIDONE [Suspect]
     Active Substance: PIRFENIDONE
     Route: 048
     Dates: start: 20131118
  8. SOLU-MEDROL [Concomitant]
     Active Substance: METHYLPREDNISOLONE SODIUM SUCCINATE
     Indication: INFECTION
     Route: 065
     Dates: start: 20141101, end: 20141103
  9. JOSACINE [Concomitant]
     Active Substance: JOSAMYCIN
     Indication: PRODUCTIVE COUGH
     Route: 065
     Dates: start: 20141013, end: 20141016
  10. COLIMYCINE [Concomitant]
     Active Substance: COLISTIMETHATE SODIUM
     Indication: RESPIRATORY DISORDER
     Route: 065
     Dates: start: 20141120
  11. PIRFENIDONE [Suspect]
     Active Substance: PIRFENIDONE
     Route: 048
     Dates: end: 20141107
  12. SPIRIVA [Concomitant]
     Active Substance: TIOTROPIUM BROMIDE MONOHYDRATE
     Indication: BRONCHOSPASM
     Dosage: UNIT DOSE: 1 DOSAGE FORMS
     Route: 065
     Dates: start: 20121221, end: 20141123
  13. SOLU-MEDROL [Concomitant]
     Active Substance: METHYLPREDNISOLONE SODIUM SUCCINATE
     Indication: IDIOPATHIC PULMONARY FIBROSIS
     Route: 065
     Dates: start: 20130921, end: 20130923
  14. PREDNISOLONE. [Concomitant]
     Active Substance: PREDNISOLONE
     Route: 065
     Dates: start: 20130803, end: 20130805
  15. PREDNISOLONE. [Concomitant]
     Active Substance: PREDNISOLONE
     Indication: BRONCHITIS
     Route: 065
     Dates: start: 20130726, end: 20130728
  16. TAVANIC [Concomitant]
     Active Substance: LEVOFLOXACIN
     Indication: BRONCHITIS
     Route: 065
     Dates: start: 20130803, end: 20130807
  17. TAVANIC [Concomitant]
     Active Substance: LEVOFLOXACIN
     Route: 065
     Dates: start: 20130904, end: 20130907
  18. MEDROL [Concomitant]
     Active Substance: METHYLPREDNISOLONE
     Indication: BRONCHITIS
     Route: 065
     Dates: start: 20130904, end: 20130907
  19. AMIKLIN [Concomitant]
     Active Substance: AMIKACIN SULFATE
     Indication: RESPIRATORY TRACT INFECTION
     Route: 065
     Dates: start: 20141110, end: 20141112
  20. PIRFENIDONE [Suspect]
     Active Substance: PIRFENIDONE
     Dosage: 2403 MG?9 DF
     Route: 048
     Dates: start: 20131111
  21. ATORVASTATIN CALCIUM. [Concomitant]
     Active Substance: ATORVASTATIN CALCIUM
     Indication: HYPERCHOLESTEROLAEMIA
     Route: 065
     Dates: end: 20141123
  22. INEXIUM [Concomitant]
     Active Substance: ESOMEPRAZOLE
     Indication: GASTROOESOPHAGEAL REFLUX DISEASE
     Route: 065
     Dates: start: 20140402, end: 20141123
  23. PIRFENIDONE [Suspect]
     Active Substance: PIRFENIDONE
     Dosage: 801 MG ?3 DF
     Route: 048
     Dates: start: 20131028
  24. SERETIDE [Concomitant]
     Active Substance: FLUTICASONE FUROATE\SALMETEROL XINAFOATE
     Indication: ASTHMA
     Dosage: UNIT DOSE: 1 DOSAGE FORMS
     Route: 065
     Dates: end: 20141123
  25. CLOPIDOGREL BISULFATE. [Concomitant]
     Active Substance: CLOPIDOGREL BISULFATE
     Indication: THROMBOSIS PROPHYLAXIS
     Route: 065
     Dates: end: 20141123
  26. LASILIX [Concomitant]
     Active Substance: FUROSEMIDE
     Indication: INFECTION
     Route: 065
     Dates: start: 20141105
  27. TIENAM [Concomitant]
     Active Substance: CILASTATIN SODIUM\IMIPENEM
     Indication: RESPIRATORY TRACT INFECTION
     Route: 065
     Dates: start: 20141110, end: 20141116
  28. ENDOXAN [Concomitant]
     Active Substance: CYCLOPHOSPHAMIDE
     Indication: INFECTION
     Route: 065
     Dates: start: 20141107, end: 20141107
  29. OXYGEN. [Concomitant]
     Active Substance: OXYGEN
     Indication: IDIOPATHIC PULMONARY FIBROSIS
     Dosage: PRN
     Route: 065
     Dates: start: 20130918, end: 20141123
  30. BACTRIM [Concomitant]
     Active Substance: SULFAMETHOXAZOLE\TRIMETHOPRIM
     Indication: ANTIFUNGAL PROPHYLAXIS
     Route: 065
     Dates: start: 20130918, end: 20141123
  31. CORTANCYL [Concomitant]
     Active Substance: PREDNISONE
     Indication: BRONCHITIS
     Route: 065
     Dates: start: 20141006, end: 20141015
  32. AUGMENTIN [Concomitant]
     Active Substance: AMOXICILLIN\CLAVULANATE POTASSIUM
     Route: 065
     Dates: start: 20141006, end: 20141016
  33. CYCLOPHOSPHAMIDE. [Concomitant]
     Active Substance: CYCLOPHOSPHAMIDE
     Indication: IDIOPATHIC PULMONARY FIBROSIS
     Route: 065
     Dates: start: 20130925, end: 20130925
  34. PIRFENIDONE [Suspect]
     Active Substance: PIRFENIDONE
     Indication: IDIOPATHIC PULMONARY FIBROSIS
     Dosage: 801 MG
     Route: 048
     Dates: start: 20130417, end: 20130918

REACTIONS (5)
  - Rhinovirus infection [Recovered/Resolved with Sequelae]
  - Gamma-glutamyltransferase increased [Recovered/Resolved]
  - Lung infection [Recovered/Resolved with Sequelae]
  - Alanine aminotransferase increased [Recovered/Resolved]
  - Aspartate aminotransferase increased [Recovered/Resolved]

NARRATIVE: CASE EVENT DATE: 20130422
